FAERS Safety Report 18401987 (Version 3)
Quarter: 2020Q4

REPORT INFORMATION
  Report Type: Report from Study
  Country: CN (occurrence: CN)
  Receive Date: 20201020
  Receipt Date: 20201112
  Transmission Date: 20210114
  Serious: Yes (Other)
  Sender: FDA-Public Use
  Company Number: CN-BRISTOL-MYERS SQUIBB COMPANY-BMS-2020-085395

PATIENT
  Age: 50 Year
  Sex: Male

DRUGS (4)
  1. NIVOLUMAB [Suspect]
     Active Substance: NIVOLUMAB
     Indication: SQUAMOUS CELL CARCINOMA OF HEAD AND NECK
     Dosage: 240 MILLIGRAM, Q2WK
     Route: 042
     Dates: start: 201910
  2. OTERACIL POTASSIUM [Concomitant]
     Active Substance: OTERACIL POTASSIUM
     Indication: PRODUCT USED FOR UNKNOWN INDICATION
     Route: 065
  3. GIMERACIL [Concomitant]
     Active Substance: GIMERACIL
     Indication: PRODUCT USED FOR UNKNOWN INDICATION
     Route: 065
  4. TEGAFUR [Concomitant]
     Active Substance: TEGAFUR
     Indication: PRODUCT USED FOR UNKNOWN INDICATION
     Route: 065

REACTIONS (7)
  - Hyperthyroidism [Recovered/Resolved]
  - Fasciitis [Recovering/Resolving]
  - Oedema peripheral [Recovering/Resolving]
  - Swelling [Unknown]
  - Pain in extremity [Unknown]
  - Hypoaesthesia [Recovering/Resolving]
  - Monoplegia [Unknown]

NARRATIVE: CASE EVENT DATE: 202006
